FAERS Safety Report 5324777-6 (Version None)
Quarter: 2007Q2

REPORT INFORMATION
  Report Type: 
  Country: None (occurrence: None)
  Receive Date: 20070515
  Receipt Date: 20070504
  Transmission Date: 20071010
  Serious: Yes (Other)
  Sender: FDA-Public Use
  Company Number: PHBS2007BR06782

PATIENT
  Age: 34 Year
  Sex: Female

DRUGS (2)
  1. TRILEPTAL [Suspect]
     Indication: EPILEPSY
     Dosage: 600 MG, TID
     Route: 048
  2. ANXIOLYTICS [Concomitant]
     Route: 048

REACTIONS (12)
  - AGGRESSION [None]
  - ASTHENIA [None]
  - BURNING SENSATION [None]
  - FALL [None]
  - FEELING HOT [None]
  - FRACTURED COCCYX [None]
  - INTENTIONAL SELF-INJURY [None]
  - MEDICATION ERROR [None]
  - SALIVA ALTERED [None]
  - SOMNOLENCE [None]
  - SPEECH DISORDER [None]
  - VOMITING [None]
